FAERS Safety Report 11901672 (Version 1)
Quarter: 2016Q1

REPORT INFORMATION
  Report Type: Report from Study
  Country: US (occurrence: US)
  Receive Date: 20160108
  Receipt Date: 20160108
  Transmission Date: 20160526
  Serious: No
  Sender: FDA-Public Use
  Company Number: US-ABBVIE-15P-163-1485739-00

PATIENT
  Age: 58 Year
  Sex: Male
  Weight: 81.72 kg

DRUGS (3)
  1. RIBAVIRIN. [Suspect]
     Active Substance: RIBAVIRIN
     Indication: HEPATITIS C
     Dosage: 3 WHITE CAPSULES BID OF 200 MG
     Route: 048
     Dates: start: 20150930
  2. CYCLOBENZAPRINE [Concomitant]
     Active Substance: CYCLOBENZAPRINE
     Indication: HYPOTONIA
  3. VIEKIRA PAK [Suspect]
     Active Substance: DASABUVIR\OMBITASVIR\PARITAPREVIR\RITONAVIR
     Indication: HEPATITIS C
     Dosage: 3 TABLETS IN AM, AND 1 TABLET IN PM.
     Route: 048
     Dates: start: 20150930

REACTIONS (11)
  - Dizziness [Recovering/Resolving]
  - Fatigue [Not Recovered/Not Resolved]
  - Chest pain [Not Recovered/Not Resolved]
  - Pruritus [Not Recovered/Not Resolved]
  - Influenza like illness [Recovered/Resolved]
  - Diarrhoea [Not Recovered/Not Resolved]
  - Retching [Recovered/Resolved]
  - Decreased appetite [Not Recovered/Not Resolved]
  - Abnormal dreams [Not Recovered/Not Resolved]
  - Nausea [Not Recovered/Not Resolved]
  - Insomnia [Not Recovered/Not Resolved]

NARRATIVE: CASE EVENT DATE: 201510
